FAERS Safety Report 5828216-8 (Version None)
Quarter: 2008Q3

REPORT INFORMATION
  Report Type: 
  Country: None (occurrence: None)
  Receive Date: 20080729
  Receipt Date: 20080714
  Transmission Date: 20090109
  Serious: Yes (Other)
  Sender: FDA-Public Use
  Company Number: 2008S1012531

PATIENT
  Age: 44 Year
  Sex: Female
  Weight: 68.0396 kg

DRUGS (1)
  1. FENTANYL TRANSDERMAL SYSTEM [Suspect]
     Indication: BACK INJURY
     Dosage: 75 UG; EVERY HOUR; TRANSDERMAL
     Route: 062
     Dates: start: 20071201, end: 20080528

REACTIONS (5)
  - DEVICE FAILURE [None]
  - DRUG DETOXIFICATION [None]
  - DRUG EFFECT DECREASED [None]
  - PHARMACEUTICAL PRODUCT COMPLAINT [None]
  - WITHDRAWAL SYNDROME [None]
